FAERS Safety Report 8566408-8 (Version None)
Quarter: 2012Q3

REPORT INFORMATION
  Report Type: 
  Country: None (occurrence: None)
  Receive Date: 20120803
  Receipt Date: 20111026
  Transmission Date: 20120928
  Serious: No
  Sender: FDA-Public Use
  Company Number: US-ABBOTT-11P-163-0869317-00

PATIENT
  Sex: Female
  Weight: 70.37 kg

DRUGS (4)
  1. NIASPAN [Suspect]
     Indication: BLOOD TRIGLYCERIDES
  2. ZOLOFT [Concomitant]
     Indication: DEPRESSION
  3. LISINOPRIL [Concomitant]
     Indication: BLOOD PRESSURE
  4. NIASPAN [Suspect]
     Indication: BLOOD CHOLESTEROL
     Dates: start: 20111025, end: 20111025

REACTIONS (3)
  - GENERALISED ERYTHEMA [None]
  - BURNING SENSATION [None]
  - PRURITUS GENERALISED [None]
